FAERS Safety Report 4319304-6 (Version None)
Quarter: 2004Q1

REPORT INFORMATION
  Report Type: 
  Country: None (occurrence: None)
  Receive Date: 20040316
  Receipt Date: 20040302
  Transmission Date: 20041129
  Serious: Yes (Life-Threatening, Hospitalization, Other)
  Sender: FDA-Public Use
  Company Number: JP-JNJFOC-20031200521

PATIENT
  Age: 60 Year
  Sex: Female
  Weight: 71 kg

DRUGS (11)
  1. REMICADE [Suspect]
     Indication: RHEUMATOID ARTHRITIS
     Dosage: SEE IMAGE
     Route: 041
     Dates: start: 20031031, end: 20031031
  2. RHEUMATREX [Concomitant]
  3. GANATON (ITOPRIDE HYDROCHLORIDE) [Concomitant]
  4. ONE ALPHA (ALFACALCIDOL) [Concomitant]
  5. RIMATIL (BUCILLAMINE) [Concomitant]
  6. LASIX [Concomitant]
  7. BETAMETHASONE [Concomitant]
  8. LOXONIN (LOXOPROFEN SODIUM) [Concomitant]
  9. CINAL (CINAL) [Concomitant]
  10. NIZATIDINE [Concomitant]
  11. GLORIAMIN (GLORIAMIN) [Concomitant]

REACTIONS (13)
  - ALPHA TUMOUR NECROSIS FACTOR DECREASED [None]
  - ATELECTASIS [None]
  - BLOOD LACTATE DEHYDROGENASE INCREASED [None]
  - C-REACTIVE PROTEIN INCREASED [None]
  - HERPES ZOSTER [None]
  - LYMPHOCYTE PERCENTAGE DECREASED [None]
  - MONOCYTE PERCENTAGE DECREASED [None]
  - MONOCYTE PERCENTAGE INCREASED [None]
  - PLATELET COUNT DECREASED [None]
  - PNEUMOCYSTIS CARINII PNEUMONIA [None]
  - PNEUMONIA KLEBSIELLA [None]
  - RED BLOOD CELL COUNT DECREASED [None]
  - WHITE BLOOD CELL COUNT INCREASED [None]
